FAERS Safety Report 4974468-6 (Version None)
Quarter: 2006Q1

REPORT INFORMATION
  Report Type: 
  Country: None (occurrence: None)
  Receive Date: 20060227
  Receipt Date: 20060120
  Transmission Date: 20060701
  Serious: No
  Sender: FDA-Public Use
  Company Number: PHEH2006US01208

PATIENT
  Sex: Female

DRUGS (2)
  1. ENABLEX [Suspect]
     Indication: HYPERTONIC BLADDER
     Dosage: 15 MG, QD
  2. OXYCONTIN [Suspect]
     Indication: PAIN
     Dosage: 20 MG

REACTIONS (2)
  - DIZZINESS [None]
  - VISION BLURRED [None]
